FAERS Safety Report 11621177 (Version 1)
Quarter: 2015Q4

REPORT INFORMATION
  Report Type: Report from Study
  Country: US (occurrence: US)
  Receive Date: 20151012
  Receipt Date: 20151012
  Transmission Date: 20160304
  Serious: Yes (Other)
  Sender: FDA-Public Use
  Company Number: PHEH2015US002993

PATIENT
  Age: 25 Year
  Sex: Female
  Weight: 97.6 kg

DRUGS (3)
  1. GILENYA [Suspect]
     Active Substance: FINGOLIMOD HYDROCHLORIDE
     Indication: RELAPSING-REMITTING MULTIPLE SCLEROSIS
     Dosage: 0.5 MG, QD
     Route: 048
     Dates: start: 20150202
  2. BACLOFEN. [Concomitant]
     Active Substance: BACLOFEN
     Indication: PRODUCT USED FOR UNKNOWN INDICATION
     Route: 065
  3. TYLENOL [Concomitant]
     Active Substance: ACETAMINOPHEN
     Indication: PRODUCT USED FOR UNKNOWN INDICATION
     Route: 065

REACTIONS (13)
  - Pain [Unknown]
  - Sensory disturbance [Unknown]
  - Fatigue [Unknown]
  - Paraesthesia [Unknown]
  - Blood pressure abnormal [Not Recovered/Not Resolved]
  - Headache [Unknown]
  - Multiple sclerosis relapse [Unknown]
  - Temperature intolerance [Unknown]
  - Neck pain [Not Recovered/Not Resolved]
  - Hypoaesthesia [Unknown]
  - Heart rate decreased [Not Recovered/Not Resolved]
  - Central nervous system lesion [Unknown]
  - Somnolence [Unknown]

NARRATIVE: CASE EVENT DATE: 20150202
